FAERS Safety Report 8264573-3 (Version None)
Quarter: 2012Q2

REPORT INFORMATION
  Report Type: 
  Country: None (occurrence: None)
  Receive Date: 20120406
  Receipt Date: 20120330
  Transmission Date: 20120825
  Serious: Yes (Death, Hospitalization)
  Sender: FDA-Public Use
  Company Number: US-CELGENEUS-163-21880-12040072

PATIENT
  Sex: Female

DRUGS (11)
  1. OMEPRAZOLE [Concomitant]
     Route: 065
  2. SIMVASTATIN [Concomitant]
     Route: 065
  3. LISINOPRIL [Concomitant]
     Route: 065
  4. NORTRIPTYLINE HCL [Concomitant]
     Route: 065
  5. REVLIMID [Suspect]
     Indication: MULTIPLE MYELOMA
     Dosage: 10 MILLIGRAM
     Route: 048
     Dates: start: 20080501, end: 20111209
  6. HYDROCHLOROTHIAZIDE [Concomitant]
     Route: 065
  7. FLUOXETINE [Concomitant]
     Route: 065
  8. ATENOLOL [Concomitant]
     Route: 065
  9. OXYCODONE HCL [Concomitant]
     Route: 065
  10. ASPIRIN [Concomitant]
     Route: 065
  11. VELCADE [Concomitant]
     Indication: MULTIPLE MYELOMA

REACTIONS (2)
  - RENAL FAILURE [None]
  - LOBAR PNEUMONIA [None]
